FAERS Safety Report 9075237 (Version 1)
Quarter: 2013Q1

REPORT INFORMATION
  Report Type: Report from Study
  Country: US (occurrence: US)
  Receive Date: 20130129
  Receipt Date: 20130129
  Transmission Date: 20140127
  Serious: No
  Sender: FDA-Public Use
  Company Number: US-ABBOTT-12P-163-0921615-00

PATIENT
  Sex: Male

DRUGS (3)
  1. HUMIRA 40 MG/0.8 ML PEN [Suspect]
     Indication: PSORIASIS
     Route: 058
  2. PLAVIX [Concomitant]
     Indication: CORONARY ARTERY BYPASS
  3. ASPIRIN [Concomitant]
     Indication: CORONARY ARTERY BYPASS

REACTIONS (5)
  - Cough [Not Recovered/Not Resolved]
  - Upper-airway cough syndrome [Not Recovered/Not Resolved]
  - Laceration [Recovering/Resolving]
  - Impaired healing [Not Recovered/Not Resolved]
  - Scab [Not Recovered/Not Resolved]
